FAERS Safety Report 5289269-1 (Version None)
Quarter: 2007Q2

REPORT INFORMATION
  Report Type: 
  Country: None (occurrence: None)
  Receive Date: 20070403
  Receipt Date: 20070403
  Transmission Date: 20071010
  Serious: Yes (Other)
  Sender: FDA-Public Use
  Company Number: None

PATIENT
  Age: 31 Year
  Sex: Female
  Weight: 63.5036 kg

DRUGS (2)
  1. ZITHROMAX [Suspect]
     Indication: SINUSITIS
     Dosage: 2 TABLETS DAY 1   1 PILL FOR 4 DAYS  PO
     Route: 048
     Dates: start: 20040528, end: 20040601
  2. ZITHROMAX [Suspect]
     Indication: SINUSITIS
     Dosage: 2 TABLETS DAY 1   1 PILL FOR 4 DAYS  PO
     Route: 048
     Dates: start: 20050411, end: 20050414

REACTIONS (2)
  - DEAFNESS [None]
  - TINNITUS [None]
